FAERS Safety Report 4972206-4 (Version None)
Quarter: 2006Q2

REPORT INFORMATION
  Report Type: 
  Country: None (occurrence: None)
  Receive Date: 20060413
  Receipt Date: 20060324
  Transmission Date: 20061013
  Serious: Yes (Other)
  Sender: FDA-Public Use
  Company Number: 2006JP000714

PATIENT
  Age: 51 Year
  Sex: Male
  Weight: 76 kg

DRUGS (12)
  1. CEFAMEZIN [Suspect]
     Indication: INFECTION PROPHYLAXIS
     Dosage: 5ML FOUR TIMES PER DAY
     Route: 042
     Dates: start: 20060301, end: 20060301
  2. DIOVAN [Concomitant]
     Route: 065
  3. ALLOPURINOL [Concomitant]
     Route: 065
  4. NORVASC [Concomitant]
  5. ATROPINE SULFATE [Concomitant]
     Dates: start: 20060301, end: 20060301
  6. ATARAX [Concomitant]
     Dates: start: 20060301, end: 20060301
  7. SINGULAIR [Concomitant]
  8. DEPAS [Concomitant]
  9. SOSEGON [Concomitant]
     Dates: start: 20060301, end: 20060301
  10. SOLULACT [Concomitant]
     Dates: start: 20060301, end: 20060301
  11. CYANOCOBALAMIN [Concomitant]
  12. LOCAL ANAESTHETIC [Concomitant]
     Route: 065
     Dates: start: 20060301

REACTIONS (7)
  - ANAPHYLACTIC REACTION [None]
  - BLOOD PRESSURE DECREASED [None]
  - BRADYCARDIA [None]
  - HYPOTENSION [None]
  - OXYGEN SATURATION DECREASED [None]
  - SHOCK [None]
  - VITAL FUNCTIONS ABNORMAL [None]
